FAERS Safety Report 13911282 (Version 1)
Quarter: 2017Q3

REPORT INFORMATION
  Report Type: Spontaneous
  Country: ZA (occurrence: ZA)
  Receive Date: 20170828
  Receipt Date: 20170828
  Transmission Date: 20171127
  Serious: Yes (Other)
  Sender: FDA-Public Use
  Company Number: PHHY2017ZA124308

PATIENT
  Age: 3 Year
  Sex: Male

DRUGS (8)
  1. GOLDGESIC [Suspect]
     Active Substance: ACETAMINOPHEN\CODEINE PHOSPHATE\PROMETHAZINE HYDROCHLORIDE
     Indication: PYREXIA
     Route: 065
  2. GOLDGESIC [Suspect]
     Active Substance: ACETAMINOPHEN\CODEINE PHOSPHATE\PROMETHAZINE HYDROCHLORIDE
     Indication: VOMITING
  3. COTRIMOXAZOLE [Suspect]
     Active Substance: SULFAMETHOXAZOLE\TRIMETHOPRIM
     Indication: PYREXIA
     Route: 065
  4. AMOXICILLIN + CLAVULANATE POTASSIUM [Suspect]
     Active Substance: AMOXICILLIN\CLAVULANATE POTASSIUM
     Indication: PYREXIA
     Route: 065
  5. CYCLIZINE [Suspect]
     Active Substance: CYCLIZINE
     Indication: VOMITING
     Route: 065
  6. COTRIMOXAZOLE [Suspect]
     Active Substance: SULFAMETHOXAZOLE\TRIMETHOPRIM
     Indication: VOMITING
  7. CYCLIZINE [Suspect]
     Active Substance: CYCLIZINE
     Indication: PYREXIA
  8. AMOXICILLIN + CLAVULANATE POTASSIUM [Suspect]
     Active Substance: AMOXICILLIN\CLAVULANATE POTASSIUM
     Indication: VOMITING

REACTIONS (6)
  - Dyschezia [Recovered/Resolved]
  - Dermatitis bullous [Recovered/Resolved]
  - Linear IgA disease [Recovered/Resolved]
  - Pruritus [Recovered/Resolved]
  - Rash vesicular [Recovered/Resolved]
  - Erythema multiforme [Recovered/Resolved]
